FAERS Safety Report 20907324 (Version 1)
Quarter: 2022Q2

REPORT INFORMATION
  Report Type: Spontaneous
  Country: BR (occurrence: None)
  Receive Date: 20220602
  Receipt Date: 20220602
  Transmission Date: 20220721
  Serious: Yes (Other)
  Sender: FDA-Public Use
  Company Number: 2022A201203

PATIENT
  Age: 88 Year
  Sex: Male

DRUGS (2)
  1. CALQUENCE [Suspect]
     Active Substance: ACALABRUTINIB
     Indication: Chronic lymphocytic leukaemia recurrent
     Route: 048
  2. CALQUENCE [Suspect]
     Active Substance: ACALABRUTINIB
     Indication: Chronic lymphocytic leukaemia recurrent
     Route: 048

REACTIONS (2)
  - Pancytopenia [Recovered/Resolved]
  - Off label use [Unknown]
